FAERS Safety Report 4267164-4 (Version None)
Quarter: 2004Q1

REPORT INFORMATION
  Report Type: 
  Country: None (occurrence: None)
  Receive Date: 20040107
  Receipt Date: 20031212
  Transmission Date: 20041129
  Serious: Yes (Hospitalization)
  Sender: FDA-Public Use
  Company Number: F01200301466

PATIENT
  Age: 58 Year
  Sex: Male

DRUGS (5)
  1. (OXALIPLATIN) - SOLUTION - 50 MG/M2 [Suspect]
     Indication: NUCLEAR MAGNETIC RESONANCE IMAGING
     Dosage: 50 MG/M2 1 WEEK INTRAVENOUS NOS
     Route: 042
     Dates: start: 20030908, end: 20030908
  2. (OXALIPLATIN) - SOLUTION - 50 MG/M2 [Suspect]
     Indication: RECTAL CANCER
     Dosage: 50 MG/M2 1 WEEK INTRAVENOUS NOS
     Route: 042
     Dates: start: 20030908, end: 20030908
  3. (CAPECITABINE) - TABLET - 825 MG/M2 [Suspect]
     Dosage: 825 MG/M2 TWICE DAILY FOR 5 DAYS OF WEEKS 1 TO 5
     Route: 048
     Dates: start: 20030908, end: 20030912
  4. GLYBURIDE [Concomitant]
  5. DOLIPIRANE (PARACETAMOL) [Concomitant]

REACTIONS (2)
  - PERITONITIS [None]
  - POST PROCEDURAL COMPLICATION [None]
